FAERS Safety Report 18441360 (Version 4)
Quarter: 2021Q1

REPORT INFORMATION
  Report Type: Spontaneous
  Country: US (occurrence: US)
  Receive Date: 20201029
  Receipt Date: 20210325
  Transmission Date: 20210419
  Serious: No
  Sender: FDA-Public Use
  Company Number: US-PFIZER INC-2020419487

PATIENT
  Age: 54 Year
  Sex: Male

DRUGS (3)
  1. SUTENT [Suspect]
     Active Substance: SUNITINIB MALATE
     Dosage: 37.5 MG, CYCLIC (DAILY FOR 3 WEEKS ON)
     Route: 048
  2. SUTENT [Suspect]
     Active Substance: SUNITINIB MALATE
     Indication: RENAL CANCER
     Dosage: 37.5 MG, CYCLIC (DAILY, 21 OUT OF 28 DAYS)
     Route: 048
     Dates: start: 20191106
  3. SUTENT [Suspect]
     Active Substance: SUNITINIB MALATE
     Dosage: 50 UNK

REACTIONS (4)
  - Abdominal discomfort [Unknown]
  - Neoplasm progression [Unknown]
  - Dyspepsia [Unknown]
  - Abdominal pain upper [Unknown]
